FAERS Safety Report 23505668 (Version 2)
Quarter: 2024Q4

REPORT INFORMATION
  Report Type: Spontaneous
  Country: FR (occurrence: FR)
  Receive Date: 20240209
  Receipt Date: 20241010
  Transmission Date: 20250114
  Serious: Yes (Life-Threatening)
  Sender: NOVARTIS
  Company Number: None

PATIENT
  Age: 19 Year
  Sex: Male
  Weight: 107 kg

DRUGS (1)
  1. CARBAMAZEPINE [Suspect]
     Active Substance: CARBAMAZEPINE
     Indication: Epilepsy
     Dosage: 1 DOSAGE FORM
     Route: 048
     Dates: start: 20231127, end: 20231205

REACTIONS (1)
  - Drug reaction with eosinophilia and systemic symptoms [Recovered/Resolved]

NARRATIVE: CASE EVENT DATE: 20231206
